FAERS Safety Report 21596806 (Version 1)
Quarter: 2022Q4

REPORT INFORMATION
  Report Type: Spontaneous
  Country: US (occurrence: US)
  Receive Date: 20221115
  Receipt Date: 20221115
  Transmission Date: 20230112
  Serious: Yes (Hospitalization)
  Sender: FDA-Public Use
  Company Number: US-MYLANLABS-2022M1125172

PATIENT
  Age: 75 Year
  Sex: Male

DRUGS (8)
  1. CLOZAPINE [Suspect]
     Active Substance: CLOZAPINE
     Indication: Psychotic disorder
     Dosage: 12.5 MILLIGRAM, QD; GRADUAL UP-TITRATION TO 50 MG DAILY
     Route: 065
  2. CLOZAPINE [Suspect]
     Active Substance: CLOZAPINE
     Dosage: 50 MILLIGRAM, QD; GRADUAL UP-TITRATION TO 50 MG DAILY
     Route: 065
  3. OLANZAPINE [Suspect]
     Active Substance: OLANZAPINE
     Indication: Psychotic disorder
     Dosage: 2.5 MILLIGRAM
     Route: 065
  4. PIMAVANSERIN [Concomitant]
     Active Substance: PIMAVANSERIN
     Indication: Psychotic disorder
     Dosage: UNK
     Route: 065
  5. PIMAVANSERIN [Concomitant]
     Active Substance: PIMAVANSERIN
     Indication: Dementia with Lewy bodies
  6. DONEPEZIL [Concomitant]
     Active Substance: DONEPEZIL
     Indication: Dementia with Lewy bodies
     Dosage: 10 MILLIGRAM, QD
     Route: 065
  7. VALPROIC ACID [Concomitant]
     Active Substance: VALPROIC ACID
     Indication: Product used for unknown indication
     Dosage: UNK
     Route: 065
  8. LORAZEPAM [Concomitant]
     Active Substance: LORAZEPAM
     Indication: Agitation
     Dosage: UNK UNK, PRN; AS NEEDED
     Route: 065

REACTIONS (4)
  - Neuropsychiatric symptoms [Recovering/Resolving]
  - Motor dysfunction [Recovering/Resolving]
  - Disease progression [Recovering/Resolving]
  - Drug ineffective [Unknown]
